FAERS Safety Report 18017738 (Version 3)
Quarter: 2020Q4

REPORT INFORMATION
  Report Type: Spontaneous
  Country: SV (occurrence: SV)
  Receive Date: 20200713
  Receipt Date: 20201019
  Transmission Date: 20210113
  Serious: Yes (Death, Other)
  Sender: FDA-Public Use
  Company Number: SV-ROCHE-2623730

PATIENT
  Age: 30 Year
  Sex: Female

DRUGS (1)
  1. TOCILIZUMAB. [Suspect]
     Active Substance: TOCILIZUMAB
     Indication: COVID-19 PNEUMONIA
     Route: 065

REACTIONS (5)
  - COVID-19 [Fatal]
  - Nosocomial infection [Unknown]
  - Maternal exposure during pregnancy [Unknown]
  - Off label use [Unknown]
  - Intentional product use issue [Unknown]
